FAERS Safety Report 12654118 (Version 1)
Quarter: 2016Q3

REPORT INFORMATION
  Report Type: Spontaneous
  Country: US (occurrence: None)
  Receive Date: 20160815
  Receipt Date: 20160815
  Transmission Date: 20161109
  Serious: Yes (Hospitalization)
  Sender: FDA-Public Use
  Company Number: None

PATIENT
  Age: 31 Year
  Sex: Female
  Weight: 85.73 kg

DRUGS (4)
  1. ZYPREXA [Suspect]
     Active Substance: OLANZAPINE
     Indication: PRODUCT USED FOR UNKNOWN INDICATION
  2. TRAZODONE [Suspect]
     Active Substance: TRAZODONE HYDROCHLORIDE
  3. HALDOL [Suspect]
     Active Substance: HALOPERIDOL
  4. ATIVAN [Suspect]
     Active Substance: LORAZEPAM

REACTIONS (2)
  - Aggression [None]
  - Contraindicated product administered [None]

NARRATIVE: CASE EVENT DATE: 20160811
